FAERS Safety Report 7085129-4 (Version None)
Quarter: 2010Q4

REPORT INFORMATION
  Report Type: 
  Country: None (occurrence: None)
  Receive Date: 20101105
  Receipt Date: 20101028
  Transmission Date: 20110411
  Serious: Yes (Other)
  Sender: FDA-Public Use
  Company Number: AT-JNJFOC-20101100391

PATIENT
  Sex: Female

DRUGS (2)
  1. TRABECTEDIN [Suspect]
     Indication: OVARIAN CANCER
     Route: 042
  2. CAELYX [Suspect]
     Indication: OVARIAN CANCER
     Route: 042

REACTIONS (1)
  - COLITIS [None]
